FAERS Safety Report 5811462-7 (Version None)
Quarter: 2008Q3

REPORT INFORMATION
  Report Type: 
  Country: None (occurrence: None)
  Receive Date: 20080708
  Receipt Date: 20080630
  Transmission Date: 20090109
  Serious: Yes (Life-Threatening)
  Sender: FDA-Public Use
  Company Number: 2008-180167-NL

PATIENT
  Age: 69 Year
  Sex: Female

DRUGS (1)
  1. TICE BCG [Suspect]
     Dosage: 50 MG ONCE INTRAVESICAL
     Route: 043

REACTIONS (1)
  - CEREBROVASCULAR ACCIDENT [None]
